FAERS Safety Report 5176936-3 (Version None)
Quarter: 2006Q4

REPORT INFORMATION
  Report Type: 
  Country: None (occurrence: None)
  Receive Date: 20061218
  Receipt Date: 20061205
  Transmission Date: 20070319
  Serious: Yes (Other)
  Sender: FDA-Public Use
  Company Number: PHEH2006US14911

PATIENT
  Age: 68 Year
  Sex: Female
  Weight: 86.621 kg

DRUGS (2)
  1. TEGRETOL-XR [Suspect]
     Indication: TRIGEMINAL NEURALGIA
     Dosage: 1200 MG, QD
     Dates: start: 20040301, end: 20060101
  2. TEGRETOL-XR [Suspect]
     Dosage: 200 MG, QD
     Dates: start: 20060101

REACTIONS (2)
  - SURGERY [None]
  - WEIGHT INCREASED [None]
